FAERS Safety Report 8237595-6 (Version None)
Quarter: 2012Q1

REPORT INFORMATION
  Report Type: 
  Country: None (occurrence: None)
  Receive Date: 20120327
  Receipt Date: 20120315
  Transmission Date: 20120608
  Serious: Yes (Death, Hospitalization)
  Sender: FDA-Public Use
  Company Number: NL-SANOFI-AVENTIS-2012SA018678

PATIENT
  Age: 60 Year
  Sex: Male
  Weight: 76 kg

DRUGS (13)
  1. TRIAMCINOLONE [Concomitant]
  2. RANITIDINE [Concomitant]
  3. LIPITOR [Concomitant]
  4. LORAZEPAM [Concomitant]
  5. EZETIMIBE [Concomitant]
  6. LOPID [Concomitant]
  7. DOCETAXEL [Suspect]
     Indication: NON-SMALL CELL LUNG CANCER STAGE IV
     Dates: start: 20120113, end: 20120113
  8. BLINDED THERAPY [Suspect]
     Dates: start: 20120203
  9. NAPROXEN [Concomitant]
  10. CALCIUM CARBONATE [Concomitant]
  11. DOCETAXEL [Suspect]
     Dates: start: 20120203, end: 20120203
  12. BLINDED THERAPY [Suspect]
     Indication: NON-SMALL CELL LUNG CANCER STAGE IV
     Dates: start: 20120113
  13. SELUKOS [Concomitant]

REACTIONS (2)
  - DYSPNOEA [None]
  - DEATH [None]
